FAERS Safety Report 4877398-3 (Version None)
Quarter: 2006Q1

REPORT INFORMATION
  Report Type: 
  Country: None (occurrence: None)
  Receive Date: 20060109
  Receipt Date: 20051226
  Transmission Date: 20060701
  Serious: Yes (Death)
  Sender: FDA-Public Use
  Company Number: 2006000008

PATIENT
  Age: 36 Year
  Sex: Female

DRUGS (8)
  1. IDARUBICIN HCL [Suspect]
     Indication: T-CELL LYMPHOMA
     Dosage: 10 MG/M*2 (DAYS 1-2), INTRAVENOUS
     Route: 042
  2. ETOPOSIDE [Suspect]
     Indication: T-CELL LYMPHOMA
     Dosage: 150 MG/M*2 (DAYS 1-5), INTRAVENOUS
     Route: 042
  3. IFOSFAMIDE [Suspect]
     Indication: T-CELL LYMPHOMA
     Dosage: 1000 MG/M*2 (DAY), INTRAVENOUS
     Route: 042
  4. METHOTREXATE [Suspect]
     Indication: T-CELL LYMPHOMA
     Dosage: INTRATHECAL
     Route: 037
  5. CISPLATIN [Concomitant]
  6. CYTARABINE [Concomitant]
  7. MESNA [Concomitant]
  8. DEXAMETHASONE [Concomitant]

REACTIONS (3)
  - HAEMODIALYSIS [None]
  - LEUKOENCEPHALOPATHY [None]
  - NEUROTOXICITY [None]
